FAERS Safety Report 12804080 (Version 1)
Quarter: 2016Q4

REPORT INFORMATION
  Report Type: Spontaneous
  Country: US (occurrence: US)
  Receive Date: 20161002
  Receipt Date: 20161002
  Transmission Date: 20170207
  Serious: Yes (Hospitalization, Other)
  Sender: FDA-Public Use
  Company Number: None

PATIENT
  Age: 1 Year
  Sex: Male
  Weight: 11.25 kg

DRUGS (3)
  1. BABY TEETHING (HYLAND HOMEOPATHIC) [Suspect]
     Active Substance: HOMEOPATHICS
     Indication: TEETHING
     Dates: start: 20150307, end: 20150520
  2. KEPPRA [Concomitant]
     Active Substance: LEVETIRACETAM
  3. TYLENOL [Concomitant]
     Active Substance: ACETAMINOPHEN

REACTIONS (1)
  - Atonic seizures [None]
